FAERS Safety Report 12093904 (Version 1)
Quarter: 2016Q1

REPORT INFORMATION
  Report Type: Spontaneous
  Country: US (occurrence: US)
  Receive Date: 20160219
  Receipt Date: 20160219
  Transmission Date: 20160526
  Serious: No
  Sender: FDA-Public Use
  Company Number: US-PFIZER INC-2016036512

PATIENT
  Sex: Female

DRUGS (8)
  1. PRAVACHOL [Suspect]
     Active Substance: PRAVASTATIN SODIUM
     Dosage: UNK
  2. APAP [Suspect]
     Active Substance: ACETAMINOPHEN
  3. MORPHINE SULFATE. [Suspect]
     Active Substance: MORPHINE SULFATE
     Dosage: UNK
  4. DEMEROL [Suspect]
     Active Substance: MEPERIDINE HYDROCHLORIDE
  5. LIPITOR ORIFARM [Suspect]
     Active Substance: ATORVASTATIN CALCIUM
     Dosage: UNK
  6. CODEINE /00012602/ [Suspect]
     Active Substance: CODEINE PHOSPHATE
     Dosage: UNK
  7. CRESTOR [Suspect]
     Active Substance: ROSUVASTATIN CALCIUM
     Dosage: UNK
  8. ZETIA [Suspect]
     Active Substance: EZETIMIBE

REACTIONS (1)
  - Drug hypersensitivity [Unknown]
